FAERS Safety Report 9154982 (Version 1)
Quarter: 2013Q1

REPORT INFORMATION
  Report Type: Spontaneous
  Country: IL (occurrence: IL)
  Receive Date: 20130311
  Receipt Date: 20130311
  Transmission Date: 20140127
  Serious: Yes (Death)
  Sender: FDA-Public Use
  Company Number: PHHY2012IL110603

PATIENT
  Age: 68 Year
  Sex: Female

DRUGS (2)
  1. SANDOSTATIN LAR [Suspect]
     Indication: CARCINOID TUMOUR
     Dosage: 30 MG, EVERY TWO WEEKS
     Dates: start: 20121023
  2. SANDOSTATIN LAR [Suspect]
     Dosage: 30 MG, EVERY TWO WEEKS
     Dates: start: 20130225

REACTIONS (4)
  - Death [Fatal]
  - Malaise [Unknown]
  - Pyrexia [Unknown]
  - Chills [Unknown]
